FAERS Safety Report 13503590 (Version 1)
Quarter: 2017Q2

REPORT INFORMATION
  Report Type: Spontaneous
  Country: US (occurrence: US)
  Receive Date: 20170502
  Receipt Date: 20170502
  Transmission Date: 20170830
  Serious: No
  Sender: FDA-Public Use
  Company Number: None

PATIENT
  Age: 80 Year
  Sex: Female
  Weight: 67.5 kg

DRUGS (16)
  1. LOSARTAN. [Concomitant]
     Active Substance: LOSARTAN
  2. METOPROLOL. [Concomitant]
     Active Substance: METOPROLOL
  3. VITAMIN E [Concomitant]
     Active Substance: .ALPHA.-TOCOPHEROL
  4. LUTEIN [Concomitant]
     Active Substance: LUTEIN
  5. PROLIA [Suspect]
     Active Substance: DENOSUMAB
     Indication: OSTEOPOROSIS PROPHYLAXIS
     Dosage: OTHER FREQUENCY:EVERY 6 MONTHS;?
     Route: 058
     Dates: start: 20151203, end: 20161213
  6. POTASSSIUM CHLOR [Concomitant]
  7. GLUCOSAMINE AND CHONDROTIN [Concomitant]
  8. MULTU VITAMIN AND MINERAL [Concomitant]
  9. VITAMIN D3 [Concomitant]
     Active Substance: CHOLECALCIFEROL
  10. CLOPIDOGREL BISULFATE. [Concomitant]
     Active Substance: CLOPIDOGREL BISULFATE
  11. INDAPAMIDE. [Concomitant]
     Active Substance: INDAPAMIDE
  12. COQ10 [Concomitant]
     Active Substance: UBIDECARENONE
  13. FLUTICASONE PROPIONATE. [Concomitant]
     Active Substance: FLUTICASONE PROPIONATE
  14. OMEGA [Concomitant]
     Active Substance: CONVALLARIA MAJALIS\CRATAEGUS LAEVIGATA LEAF\PROXYPHYLLINE
  15. VITAMIN C [Concomitant]
     Active Substance: ASCORBIC ACID
  16. CAL MAG D [Concomitant]

REACTIONS (5)
  - Myalgia [None]
  - Arthralgia [None]
  - Groin pain [None]
  - Pain in extremity [None]
  - Bone pain [None]

NARRATIVE: CASE EVENT DATE: 20160820
